FAERS Safety Report 13196091 (Version 2)
Quarter: 2017Q1

REPORT INFORMATION
  Report Type: Spontaneous
  Country: IT (occurrence: IT)
  Receive Date: 20170208
  Receipt Date: 20170216
  Transmission Date: 20170428
  Serious: Yes (Life-Threatening, Hospitalization, Other)
  Sender: FDA-Public Use
  Company Number: IT-SUN PHARMACEUTICAL INDUSTRIES LTD-2017RR-131290

PATIENT
  Age: 86 Year
  Sex: Female

DRUGS (3)
  1. METFORMIN [Suspect]
     Active Substance: METFORMIN HYDROCHLORIDE
     Indication: DIABETES MELLITUS
     Dosage: 1750 MG, DAILY
     Route: 065
     Dates: start: 2006
  2. CARDIO ASA [Suspect]
     Active Substance: ASPIRIN
     Indication: ANGIOPATHY
     Dosage: 100 MG, DAILY
     Route: 065
  3. TRIATEC [Suspect]
     Active Substance: RAMIPRIL
     Indication: HYPERTENSION
     Dosage: 2.5 MG, DAILY
     Route: 065

REACTIONS (4)
  - Cardiac arrest [Recovered/Resolved]
  - Ischaemic cerebral infarction [Unknown]
  - Acute kidney injury [Recovered/Resolved]
  - Lactic acidosis [Recovered/Resolved]
